FAERS Safety Report 5489878-0 (Version None)
Quarter: 2007Q4

REPORT INFORMATION
  Report Type: 
  Country: None (occurrence: None)
  Receive Date: 20071018
  Receipt Date: 20071012
  Transmission Date: 20080405
  Serious: Yes (Death)
  Sender: FDA-Public Use
  Company Number: JP-BRISTOL-MYERS SQUIBB COMPANY-13923404

PATIENT
  Age: 74 Year
  Sex: Male

DRUGS (10)
  1. TAXOL [Suspect]
     Indication: GASTRIC CANCER
     Dosage: STARTED ON 20-AUG-2007.
     Route: 041
     Dates: start: 20070827, end: 20070827
  2. TS-1 [Suspect]
     Indication: GASTRIC CANCER
     Route: 048
     Dates: start: 20070820, end: 20070903
  3. FAMOTIDINE [Concomitant]
     Route: 042
     Dates: start: 20070820, end: 20070827
  4. DECADRON [Concomitant]
     Route: 042
     Dates: start: 20070820, end: 20070827
  5. KYTRIL [Concomitant]
     Route: 042
     Dates: start: 20070820, end: 20070827
  6. PREDONINE [Concomitant]
     Dosage: 200 MG 09-SEP-2007 TO 11-SEP-2007 ORAL.
     Route: 048
     Dates: end: 20070903
  7. LANSOPRAZOLE [Concomitant]
     Route: 048
     Dates: end: 20070903
  8. CLEANAL [Concomitant]
     Route: 048
     Dates: end: 20070903
  9. WARFARIN POTASSIUM [Concomitant]
     Route: 048
     Dates: end: 20070903
  10. NOVOLIN R [Concomitant]
     Route: 050
     Dates: end: 20070903

REACTIONS (1)
  - INTERSTITIAL LUNG DISEASE [None]
